FAERS Safety Report 23497796 (Version 1)
Quarter: 2024Q1

REPORT INFORMATION
  Report Type: Spontaneous
  Country: US (occurrence: None)
  Receive Date: 20240207
  Receipt Date: 20240207
  Transmission Date: 20240410
  Serious: No
  Sender: FDA-Public Use
  Company Number: US-ROCHE-3429833

PATIENT
  Age: 56 Year
  Sex: Female
  Weight: 90.346 kg

DRUGS (13)
  1. XOLAIR [Suspect]
     Active Substance: OMALIZUMAB
     Indication: Asthma
     Route: 058
     Dates: start: 20220502
  2. LEVOTHYROXINE [Concomitant]
     Active Substance: LEVOTHYROXINE\LEVOTHYROXINE SODIUM
  3. MOUNJARO [Concomitant]
     Active Substance: TIRZEPATIDE
  4. TELMISARTAN [Concomitant]
     Active Substance: TELMISARTAN
  5. AMLODIPINE [Concomitant]
     Active Substance: AMLODIPINE BESYLATE
  6. HYDRALAZINE [Concomitant]
     Active Substance: HYDRALAZINE HYDROCHLORIDE
  7. SIMVASTATIN [Concomitant]
     Active Substance: SIMVASTATIN
  8. SYMBICORT [Concomitant]
     Active Substance: BUDESONIDE\FORMOTEROL FUMARATE DIHYDRATE
  9. SPIRIVA [Concomitant]
     Active Substance: TIOTROPIUM BROMIDE MONOHYDRATE
  10. REMERON [Concomitant]
     Active Substance: MIRTAZAPINE
  11. ZOLOFT [Concomitant]
     Active Substance: SERTRALINE HYDROCHLORIDE
  12. XIIDRA [Concomitant]
     Active Substance: LIFITEGRAST
  13. VITAMIN D3 [Concomitant]
     Active Substance: CHOLECALCIFEROL

REACTIONS (2)
  - Clostridium difficile infection [Unknown]
  - Gastrointestinal infection [Unknown]
